FAERS Safety Report 5336505-9 (Version None)
Quarter: 2007Q2

REPORT INFORMATION
  Report Type: 
  Country: None (occurrence: None)
  Receive Date: 20070524
  Receipt Date: 20070430
  Transmission Date: 20071010
  Serious: Yes (Hospitalization)
  Sender: FDA-Public Use
  Company Number: FSC_00104_2007

PATIENT
  Sex: Female
  Weight: 50 kg

DRUGS (3)
  1. ISOPTIN [Suspect]
     Dosage: (120 MG 20X ORAL)
     Dates: start: 20070415, end: 20070415
  2. PARACEMTAMOL (PARACETTAMOL) 500 MG [Suspect]
     Dosage: (500 MG 10X ORAL)
     Route: 048
     Dates: start: 20070415, end: 20070415
  3. HYOSCINE HBR HYT [Suspect]
     Dosage: (10 MG 10X ORAL)
     Route: 048

REACTIONS (9)
  - ATRIOVENTRICULAR BLOCK [None]
  - DRUG TOXICITY [None]
  - HYPOTENSION [None]
  - NAUSEA [None]
  - NODAL RHYTHM [None]
  - PALLOR [None]
  - SINUS BRADYCARDIA [None]
  - SUICIDE ATTEMPT [None]
  - VOMITING [None]
